FAERS Safety Report 19585868 (Version 2)
Quarter: 2022Q3

REPORT INFORMATION
  Report Type: Spontaneous
  Country: US (occurrence: US)
  Receive Date: 20210721
  Receipt Date: 20220829
  Transmission Date: 20221026
  Serious: Yes (Other)
  Sender: FDA-Public Use
  Company Number: US-SA-2021SA238641

PATIENT
  Age: 43 Year
  Sex: Male

DRUGS (1)
  1. ZANTAC [Suspect]
     Active Substance: RANITIDINE HYDROCHLORIDE
     Indication: Dyspepsia
     Dosage: 150 MG, QD
     Dates: start: 198606, end: 202003

REACTIONS (2)
  - Skin cancer [Unknown]
  - Prostate cancer stage I [Recovering/Resolving]

NARRATIVE: CASE EVENT DATE: 19930101
